FAERS Safety Report 7033972-X (Version None)
Quarter: 2010Q4

REPORT INFORMATION
  Report Type: 
  Country: None (occurrence: None)
  Receive Date: 20101005
  Receipt Date: 20100921
  Transmission Date: 20110411
  Serious: Yes (Other)
  Sender: FDA-Public Use
  Company Number: US-1183462

PATIENT
  Age: 10 Year
  Sex: Male

DRUGS (1)
  1. PATANASE [Suspect]
     Dosage: (NASAL)
     Route: 045

REACTIONS (1)
  - HYPOSMIA [None]
